FAERS Safety Report 10307132 (Version 2)
Quarter: 2015Q1

REPORT INFORMATION
  Report Type: Report from Study
  Country: BR (occurrence: BR)
  Receive Date: 20140716
  Receipt Date: 20150121
  Transmission Date: 20150720
  Serious: Yes (Other)
  Sender: FDA-Public Use
  Company Number: BR-ROCHE-1431987

PATIENT

DRUGS (1)
  1. BEVACIZUMAB [Suspect]
     Active Substance: BEVACIZUMAB
     Indication: GLAUCOMA
     Dosage: INTRAOPERATIVELY , 4 AND 8 WEEKS AFTER SURGERY
     Route: 050

REACTIONS (2)
  - Hyphaema [Unknown]
  - Off label use [Unknown]
